FAERS Safety Report 5386793-8 (Version None)
Quarter: 2007Q3

REPORT INFORMATION
  Report Type: 
  Country: None (occurrence: None)
  Receive Date: 20070713
  Receipt Date: 20070710
  Transmission Date: 20080115
  Serious: Yes (Other)
  Sender: FDA-Public Use
  Company Number: US-BRISTOL-MYERS SQUIBB COMPANY-13841101

PATIENT
  Sex: Female
  Weight: 74 kg

DRUGS (15)
  1. COUMADIN [Suspect]
     Route: 048
  2. LASIX [Concomitant]
  3. K-DUR 10 [Concomitant]
  4. ASCORBIC ACID [Concomitant]
  5. TOPROL-XL [Concomitant]
  6. MEVACOR [Concomitant]
  7. PROTONIX [Concomitant]
  8. NU-IRON [Concomitant]
  9. COLACE [Concomitant]
  10. XANAX [Concomitant]
  11. ENALAPRIL MALEATE [Concomitant]
  12. LANOXIN [Concomitant]
  13. ZAROXOLYN [Concomitant]
  14. NITROGLYCERIN [Concomitant]
  15. LACTULOSE [Concomitant]

REACTIONS (6)
  - BLOOD POTASSIUM DECREASED [None]
  - BLOOD PRESSURE INCREASED [None]
  - CHEST PAIN [None]
  - INTERNATIONAL NORMALISED RATIO FLUCTUATION [None]
  - OEDEMA PERIPHERAL [None]
  - SKIN DISCOLOURATION [None]
